FAERS Safety Report 8118896-9 (Version None)
Quarter: 2012Q1

REPORT INFORMATION
  Report Type: 
  Country: None (occurrence: None)
  Receive Date: 20120207
  Receipt Date: 20120130
  Transmission Date: 20120608
  Serious: Yes (Other)
  Sender: FDA-Public Use
  Company Number: US-JNJFOC-20120200595

PATIENT
  Sex: Male

DRUGS (1)
  1. LISTERINE ORIGINAL [Suspect]
     Indication: ACCIDENTAL EXPOSURE
     Dosage: HALF A MOUTHFUL
     Route: 048
     Dates: start: 20120129

REACTIONS (4)
  - ABDOMINAL PAIN UPPER [None]
  - NAUSEA [None]
  - HAEMATEMESIS [None]
  - ACCIDENTAL EXPOSURE [None]
